FAERS Safety Report 25788535 (Version 1)
Quarter: 2025Q3

REPORT INFORMATION
  Report Type: Spontaneous
  Country: US (occurrence: US)
  Receive Date: 20250910
  Receipt Date: 20250910
  Transmission Date: 20251021
  Serious: Yes (Other)
  Sender: AMGEN
  Company Number: US-AMGEN-USASP2025176644

PATIENT
  Age: 48 Year
  Sex: Female

DRUGS (4)
  1. IMDELLTRA [Suspect]
     Active Substance: TARLATAMAB-DLLE
     Indication: Small cell lung cancer
     Route: 065
     Dates: start: 20250830
  2. PHENYLEPHRINE [Concomitant]
     Active Substance: PHENYLEPHRINE
     Indication: Blood pressure abnormal
  3. VASOPRESSIN [Concomitant]
     Active Substance: VASOPRESSIN
     Indication: Blood pressure abnormal
  4. Neo [Concomitant]

REACTIONS (6)
  - Cytokine release syndrome [Unknown]
  - Shock [Unknown]
  - Deep vein thrombosis [Unknown]
  - Pulmonary oedema [Unknown]
  - Cancer pain [Unknown]
  - Off label use [Unknown]

NARRATIVE: CASE EVENT DATE: 20250830
